FAERS Safety Report 5977644-9 (Version None)
Quarter: 2008Q4

REPORT INFORMATION
  Report Type: 
  Country: None (occurrence: None)
  Receive Date: 20081201
  Receipt Date: 20081201
  Transmission Date: 20090506
  Serious: Yes (Hospitalization)
  Sender: FDA-Public Use
  Company Number: None

PATIENT
  Age: 76 Year
  Sex: Male
  Weight: 62.551 kg

DRUGS (17)
  1. ABRAXANE [Suspect]
     Indication: NON-SMALL CELL LUNG CANCER
     Dosage: 100MG/M2 IV D1 Q 21 D
     Route: 042
     Dates: start: 20081006, end: 20081103
  2. CARBOPLATIN [Suspect]
     Indication: NON-SMALL CELL LUNG CANCER
     Dosage: AUC 6 Q 21 DAYS
  3. AVASTIN [Suspect]
     Indication: NON-SMALL CELL LUNG CANCER
     Dosage: 15 MG/KG IV D-14 + Q21D
     Route: 042
  4. ATENOLOL [Concomitant]
  5. GLYBURIDE [Concomitant]
  6. PRILOSEC [Concomitant]
  7. ACETAMINOPHEN [Concomitant]
  8. OXYCODONE HCL [Suspect]
  9. OXYCODONE CONTROLLED RELEASE (OXYCONTIN) [Concomitant]
  10. LORAZEPAM [Concomitant]
  11. COMPAZINE [Concomitant]
  12. SENNA [Concomitant]
  13. COLACE [Concomitant]
  14. BRIMONIDINE TARTRATE [Concomitant]
  15. DORZOLAMIDE 2% (TRUSOPT 2%) [Concomitant]
  16. XALATAN [Concomitant]
  17. TIMOLOL MALEATE [Concomitant]

REACTIONS (5)
  - DISEASE PROGRESSION [None]
  - ELECTROCARDIOGRAM P WAVE ABNORMAL [None]
  - FATIGUE [None]
  - HYPOTENSION [None]
  - SUPRAVENTRICULAR TACHYCARDIA [None]
